FAERS Safety Report 22151542 (Version 1)
Quarter: 2023Q1

REPORT INFORMATION
  Report Type: Other
  Country: None (occurrence: ES)
  Receive Date: 20230329
  Receipt Date: 20230329
  Transmission Date: 20230418
  Serious: Yes (Other)
  Sender: FDA-Public Use
  Company Number: ES-PAI Holdings, LLC dba Pharmaceutical Associates, Inc.-2139658

PATIENT
  Age: 52 Year
  Sex: Male

DRUGS (2)
  1. OXYCODONE HYDROCHLORIDE [Suspect]
     Active Substance: OXYCODONE HYDROCHLORIDE
     Indication: Osteoarthritis
  2. DEVICE [Suspect]
     Active Substance: DEVICE

REACTIONS (1)
  - Hepatotoxicity [Recovered/Resolved]
